FAERS Safety Report 21440698 (Version 1)
Quarter: 2022Q4

REPORT INFORMATION
  Report Type: Spontaneous
  Country: US (occurrence: US)
  Receive Date: 20221011
  Receipt Date: 20221011
  Transmission Date: 20230112
  Serious: Yes (Other)
  Sender: FDA-Public Use
  Company Number: US-PFIZER INC-202200501094

PATIENT
  Age: 78 Year
  Sex: Female

DRUGS (1)
  1. IBRANCE [Suspect]
     Active Substance: PALBOCICLIB
     Indication: Breast cancer female
     Dosage: 75 MG, CYCLIC (1 CAPSULE DAILY FOR 14 DAYS WITH FOOD EVERY 28 DAY CYCLE)
     Route: 048

REACTIONS (3)
  - Cytopenia [Unknown]
  - Off label use [Unknown]
  - Product use issue [Unknown]
